FAERS Safety Report 20963753 (Version 1)
Quarter: 2022Q2

REPORT INFORMATION
  Report Type: Spontaneous
  Country: US (occurrence: None)
  Receive Date: 20220615
  Receipt Date: 20220615
  Transmission Date: 20220721
  Serious: Yes (Other)
  Sender: FDA-Public Use
  Company Number: 2022A219311

PATIENT

DRUGS (1)
  1. FASENRA [Suspect]
     Active Substance: BENRALIZUMAB
     Indication: Asthma
     Dosage: FASENRA, 30 MG EVERY 4 WEEKS FOR THE FIRST 3 DOSES, AND EVERY 8 WEEKS THEREAFTER.
     Route: 058

REACTIONS (1)
  - Meningitis [Unknown]
